FAERS Safety Report 5563864-4 (Version None)
Quarter: 2007Q4

REPORT INFORMATION
  Report Type: 
  Country: None (occurrence: None)
  Receive Date: 20071217
  Receipt Date: 20071009
  Transmission Date: 20080405
  Serious: No
  Sender: FDA-Public Use
  Company Number: US-ASTRAZENECA-2007UW23439

PATIENT
  Age: 60 Year
  Sex: Male
  Weight: 68 kg

DRUGS (10)
  1. CRESTOR [Suspect]
     Indication: BLOOD CHOLESTEROL
     Route: 048
  2. CENTRUM SILVER [Concomitant]
  3. VITAMIN B-12 [Concomitant]
  4. VITAMIN E [Concomitant]
  5. BORAGE FLAX [Concomitant]
  6. FISH OIL [Concomitant]
  7. ASCORBIC ACID [Concomitant]
  8. LOPRESSOR [Concomitant]
  9. PERPHENAZINE [Concomitant]
  10. HYDROCHLOROTHIAZIDE [Concomitant]

REACTIONS (1)
  - ALOPECIA [None]
